FAERS Safety Report 5497165-X (Version None)
Quarter: 2007Q4

REPORT INFORMATION
  Report Type: 
  Country: None (occurrence: None)
  Receive Date: 20071025
  Receipt Date: 20070223
  Transmission Date: 20080405
  Serious: No
  Sender: FDA-Public Use
  Company Number: A0611816A

PATIENT
  Age: 66 Year
  Sex: Female

DRUGS (6)
  1. ADVAIR DISKUS 100/50 [Suspect]
     Dosage: 1PUFF TWICE PER DAY
     Route: 055
  2. SYNTHROID [Concomitant]
  3. BECONASE AQ [Concomitant]
  4. ALLERGY INJECTIONS [Concomitant]
  5. ZOCOR [Concomitant]
  6. PROVENTIL [Concomitant]

REACTIONS (5)
  - CHOKING SENSATION [None]
  - COUGH [None]
  - NASAL POLYPS [None]
  - THYROID DISORDER [None]
  - THYROIDECTOMY [None]
